FAERS Safety Report 10913396 (Version 2)
Quarter: 2015Q2

REPORT INFORMATION
  Report Type: Spontaneous
  Country: CO (occurrence: CO)
  Receive Date: 20150313
  Receipt Date: 20150420
  Transmission Date: 20150821
  Serious: Yes (Hospitalization, Other)
  Sender: FDA-Public Use
  Company Number: CO-AMGEN-COLSP2015022118

PATIENT
  Age: 69 Year
  Sex: Male

DRUGS (1)
  1. MIMPARA [Suspect]
     Active Substance: CINACALCET HYDROCHLORIDE
     Indication: HYPERPARATHYROIDISM SECONDARY
     Dosage: 90 MG, QD
     Route: 065
     Dates: start: 201301

REACTIONS (4)
  - Aortic stenosis [Unknown]
  - Heart valve replacement [Unknown]
  - Blood parathyroid hormone increased [Unknown]
  - Acute pulmonary oedema [Unknown]
